FAERS Safety Report 23836013 (Version 1)
Quarter: 2024Q2

REPORT INFORMATION
  Report Type: Spontaneous
  Country: US (occurrence: None)
  Receive Date: 20240508
  Receipt Date: 20240508
  Transmission Date: 20240716
  Serious: Yes (Life-Threatening)
  Sender: FDA-Public Use
  Company Number: None

PATIENT
  Age: 41 Year
  Sex: Female
  Weight: 66.68 kg

DRUGS (2)
  1. APREMILAST [Suspect]
     Active Substance: APREMILAST
     Indication: Psoriasis
     Dosage: FREQUENCY : TWICE A DAY;?
     Route: 048
     Dates: start: 20240202, end: 20240508
  2. OTEZLA [Concomitant]
     Active Substance: APREMILAST

REACTIONS (2)
  - Angioedema [None]
  - Urticaria [None]

NARRATIVE: CASE EVENT DATE: 20240404
